FAERS Safety Report 8082785-9 (Version None)
Quarter: 2012Q1

REPORT INFORMATION
  Report Type: 
  Country: None (occurrence: None)
  Receive Date: 20120127
  Receipt Date: 20110210
  Transmission Date: 20120608
  Serious: No
  Sender: FDA-Public Use
  Company Number: US-ABBOTT-11P-163-0703986-00

PATIENT
  Age: 34 Year
  Sex: Female

DRUGS (3)
  1. HUMIRA [Suspect]
     Indication: PSORIASIS
     Dates: start: 20101201
  2. DRONABINOL [Concomitant]
     Indication: DYSTONIA
     Dosage: 5MG PRN
  3. BOTOX [Concomitant]
     Indication: DYSTONIA
     Dosage: INJECTIONS Q 3 MONTHS IN NECK + SHOLDER

REACTIONS (1)
  - INJECTION SITE PAIN [None]
